FAERS Safety Report 4488093-7 (Version None)
Quarter: 2004Q4

REPORT INFORMATION
  Report Type: 
  Country: None (occurrence: None)
  Receive Date: 20041028
  Receipt Date: 20041027
  Transmission Date: 20050328
  Serious: Yes (Death)
  Sender: FDA-Public Use
  Company Number: FR-GLAXOSMITHKLINE-B0349464A

PATIENT
  Sex: Female

DRUGS (2)
  1. ZYBAN [Suspect]
     Dosage: 150MG UNKNOWN
     Route: 048
     Dates: start: 20040101
  2. ANESTHESIA [Suspect]
     Dates: start: 20040801

REACTIONS (2)
  - ANAPHYLACTIC SHOCK [None]
  - DRUG INTERACTION [None]
